FAERS Safety Report 8494635 (Version 2)
Quarter: 2013Q1

REPORT INFORMATION
  Report Type: Report from Study
  Country: DE (occurrence: DE)
  Receive Date: 20120404
  Receipt Date: 20130214
  Transmission Date: 20140127
  Serious: Yes (Other)
  Sender: FDA-Public Use
  Company Number: DE-ABBOTT-12P-062-0920282-00

PATIENT
  Sex: Female

DRUGS (2)
  1. HUMIRA 40 MG/ 0.8 ML PRE-FILLED SYRINGE [Suspect]
     Indication: SARCOIDOSIS
     Route: 058
     Dates: start: 20090501, end: 20110801
  2. DRUG AGAINST OSTEOPOROSIS [Concomitant]
     Indication: PRODUCT USED FOR UNKNOWN INDICATION

REACTIONS (4)
  - Arthropathy [Recovered/Resolved]
  - Pain [Recovered/Resolved]
  - Rheumatoid factor increased [Recovered/Resolved]
  - Off label use [Unknown]
